FAERS Safety Report 13205414 (Version 2)
Quarter: 2017Q1

REPORT INFORMATION
  Report Type: Spontaneous
  Country: RU (occurrence: RU)
  Receive Date: 20170209
  Receipt Date: 20170223
  Transmission Date: 20170428
  Serious: Yes (Hospitalization)
  Sender: FDA-Public Use
  Company Number: RU-ASTRAZENECA-2017SE13968

PATIENT
  Age: 79 Year
  Sex: Female
  Weight: 66 kg

DRUGS (7)
  1. FOSICARD [Concomitant]
  2. AMLODIPIN [Concomitant]
     Active Substance: AMLODIPINE BESYLATE
  3. ATORIS [Concomitant]
     Active Substance: ATORVASTATIN CALCIUM
  4. THROMBO ASS [Concomitant]
     Active Substance: ASPIRIN
  5. BRILINTA [Suspect]
     Active Substance: TICAGRELOR
     Indication: MYOCARDIAL INFARCTION
     Route: 048
     Dates: start: 201608
  6. TANAKAN [Concomitant]
     Active Substance: GINKGO
  7. PANANGIN [Concomitant]
     Active Substance: MAGNESIUM ASPARTATE\POTASSIUM ASPARTATE

REACTIONS (2)
  - Bronchitis [Recovered/Resolved]
  - Contusion [Not Recovered/Not Resolved]

NARRATIVE: CASE EVENT DATE: 20160829
